FAERS Safety Report 24638557 (Version 2)
Quarter: 2025Q1

REPORT INFORMATION
  Report Type: Report from Study
  Country: US (occurrence: US)
  Receive Date: 20241119
  Receipt Date: 20250205
  Transmission Date: 20250408
  Serious: Yes (Other)
  Sender: ABBVIE
  Company Number: US-ABBVIE-6003632

PATIENT
  Age: 87 Year
  Sex: Male

DRUGS (19)
  1. VENETOCLAX [Suspect]
     Active Substance: VENETOCLAX
     Indication: Acute myelomonocytic leukaemia
     Route: 048
     Dates: start: 20241104
  2. VENETOCLAX [Suspect]
     Active Substance: VENETOCLAX
     Indication: Acute myelomonocytic leukaemia
     Route: 048
     Dates: start: 20241105
  3. VENETOCLAX [Suspect]
     Active Substance: VENETOCLAX
     Indication: Acute myelomonocytic leukaemia
     Dosage: DAY 3?FOR 28 DAYS
     Route: 048
     Dates: start: 20241106
  4. ELTROMBOPAG [Concomitant]
     Active Substance: ELTROMBOPAG
     Indication: Immune thrombocytopenia
     Route: 048
     Dates: start: 20230501, end: 20241015
  5. ASPIRIN [Concomitant]
     Active Substance: ASPIRIN
     Indication: Product used for unknown indication
     Route: 048
     Dates: start: 20210816
  6. CYANOCOBALAMIN [Concomitant]
     Active Substance: CYANOCOBALAMIN
     Indication: Product used for unknown indication
     Route: 048
     Dates: start: 20210816
  7. FOLIC ACID [Concomitant]
     Active Substance: FOLIC ACID
     Indication: Product used for unknown indication
     Dosage: FOLIC ACID
     Route: 048
     Dates: start: 20230417
  8. FOLIC ACID [Concomitant]
     Active Substance: FOLIC ACID
     Indication: Product used for unknown indication
     Dosage: FOLIC ACID
     Route: 048
     Dates: start: 20210610
  9. FOLIC ACID [Concomitant]
     Active Substance: FOLIC ACID
     Indication: Product used for unknown indication
     Dosage: FOLIC ACID
     Route: 048
     Dates: start: 20220829
  10. FOLIC ACID [Concomitant]
     Active Substance: FOLIC ACID
     Indication: Product used for unknown indication
     Dosage: FOLIC ACID
     Route: 048
     Dates: start: 20240503
  11. DECITABINE [Concomitant]
     Active Substance: DECITABINE
     Indication: Acute myelomonocytic leukaemia
     Route: 065
     Dates: start: 20241111
  12. TRIAMCINOLONE ACETONIDE [Concomitant]
     Active Substance: TRIAMCINOLONE ACETONIDE
     Indication: Rash
     Dosage: APPLY TO RASH TWICE A DAY UNTIL RESOLVE
     Route: 061
     Dates: start: 20230206
  13. PROMACTA [Concomitant]
     Active Substance: ELTROMBOPAG OLAMINE
     Indication: Product used for unknown indication
     Route: 048
     Dates: start: 20221125
  14. PROMACTA [Concomitant]
     Active Substance: ELTROMBOPAG OLAMINE
     Indication: Product used for unknown indication
     Route: 048
     Dates: start: 20240306
  15. SERTRALINE [Concomitant]
     Active Substance: SERTRALINE HYDROCHLORIDE
     Indication: Product used for unknown indication
     Route: 048
     Dates: start: 20230501
  16. SIMVASTATIN [Concomitant]
     Active Substance: SIMVASTATIN
     Indication: Product used for unknown indication
     Route: 048
  17. LEVOTHYROXINE [Concomitant]
     Active Substance: LEVOTHYROXINE
     Indication: Product used for unknown indication
     Route: 048
     Dates: start: 20230501
  18. SARS-CoV-2 vaccine [Concomitant]
     Indication: COVID-19 immunisation
     Route: 030
     Dates: start: 20241104, end: 20241104
  19. METOPROLOL [Concomitant]
     Active Substance: METOPROLOL
     Indication: Product used for unknown indication
     Route: 048
     Dates: start: 20230501

REACTIONS (6)
  - Post procedural hypothyroidism [Unknown]
  - Dysphagia [Unknown]
  - Goitre [Unknown]
  - Swelling [Unknown]
  - Hypocalcaemia [Unknown]
  - Neck mass [Unknown]

NARRATIVE: CASE EVENT DATE: 20240101
